FAERS Safety Report 11069771 (Version 2)
Quarter: 2015Q2

REPORT INFORMATION
  Report Type: Spontaneous
  Country: BD (occurrence: BD)
  Receive Date: 20150427
  Receipt Date: 20150516
  Transmission Date: 20150821
  Serious: Yes (Death)
  Sender: FDA-Public Use
  Company Number: PHHY2015BD049346

PATIENT
  Age: 22 Year
  Sex: Female

DRUGS (1)
  1. CARBAMAZEPINE. [Suspect]
     Active Substance: CARBAMAZEPINE
     Indication: PRODUCT USED FOR UNKNOWN INDICATION
     Route: 065

REACTIONS (15)
  - Tachycardia [Fatal]
  - Sepsis [Fatal]
  - Mucosal erosion [Fatal]
  - Erythema [Fatal]
  - Corneal opacity [Fatal]
  - Blister [Fatal]
  - Dehydration [Fatal]
  - Conjunctivitis [Fatal]
  - Electrolyte imbalance [Fatal]
  - Hypoproteinaemia [Fatal]
  - Cough [Fatal]
  - Toxic epidermal necrolysis [Fatal]
  - Body temperature increased [Fatal]
  - Alopecia [Fatal]
  - Eyelid oedema [Fatal]
